FAERS Safety Report 9512130 (Version 1)
Quarter: 2013Q3

REPORT INFORMATION
  Report Type: Spontaneous
  Country: GB (occurrence: None)
  Receive Date: 20130906
  Receipt Date: 20130906
  Transmission Date: 20140515
  Serious: Yes (Other)
  Sender: FDA-Public Use
  Company Number: AUR-APL-2013-07268

PATIENT
  Age: 79 Year
  Sex: Male

DRUGS (12)
  1. METFORMIN [Suspect]
     Indication: TYPE 2 DIABETES MELLITUS
     Dates: start: 20130601, end: 20130807
  2. ASPIRIN (ACETYLSALICYLIC ACID) [Concomitant]
  3. BICALUTAMIDE (BICALUTAMIDE) [Concomitant]
  4. CANDESARTAN (CANDESARTAN) [Concomitant]
  5. FUROSEMIDE (FUROSEMIDE) [Concomitant]
  6. LORAZEPAM (LORAZEPAM) [Concomitant]
  7. LUMIGAN (BIMATOPROST) [Concomitant]
  8. ORAMORPH (MORPHINE SULFATE PENTAHYDRATE) [Concomitant]
  9. SERETIDE (SERETIDE) [Concomitant]
  10. SIMVASTATIN (SIMVASTATIN) [Concomitant]
  11. TIOTROPIUM (TIOTROPIUM) [Concomitant]
  12. VENTOLIN (SALBUTAMOL) [Concomitant]

REACTIONS (4)
  - Somnolence [None]
  - Confusional state [None]
  - Speech disorder [None]
  - Malaise [None]
